FAERS Safety Report 10884464 (Version 2)
Quarter: 2015Q1

REPORT INFORMATION
  Report Type: Spontaneous
  Country: TR (occurrence: None)
  Receive Date: 20150227
  Receipt Date: 20150330
  Transmission Date: 20150721
  Serious: Yes (Hospitalization)
  Sender: FDA-Public Use
  Company Number: 2757396

PATIENT
  Age: 57 Year
  Sex: Male
  Weight: 45 kg

DRUGS (6)
  1. AZILECT [Suspect]
     Active Substance: RASAGILINE MESYLATE
     Indication: PARKINSON^S DISEASE
  2. FENTANYL CITRATE. [Suspect]
     Active Substance: FENTANYL CITRATE
     Indication: INDUCTION OF ANAESTHESIA
     Dosage: TOTAL 2.8 MG
     Route: 041
  3. PAROXETINE [Concomitant]
     Active Substance: PAROXETINE\PAROXETINE HYDROCHLORIDE
     Indication: MITRAL VALVE REPLACEMENT
  4. MIDAZOLAM [Concomitant]
     Active Substance: MIDAZOLAM\MIDAZOLAM HYDROCHLORIDE
  5. ROCURONIUM [Concomitant]
     Active Substance: ROCURONIUM BROMIDE
  6. FENTANYL CITRATE. [Suspect]
     Active Substance: FENTANYL CITRATE
     Indication: MAINTENANCE OF ANAESTHESIA
     Dosage: TOTAL 2.8 MG
     Route: 041

REACTIONS (7)
  - Hypertension [None]
  - Drug interaction [None]
  - Hyperthermia [None]
  - Supraventricular tachycardia [None]
  - Atrial fibrillation [None]
  - Flushing [None]
  - Hyperhidrosis [None]
